FAERS Safety Report 23231622 (Version 1)
Quarter: 2023Q4

REPORT INFORMATION
  Report Type: Spontaneous
  Country: FR (occurrence: FR)
  Receive Date: 20231127
  Receipt Date: 20231127
  Transmission Date: 20240109
  Serious: Yes (Death, Other)
  Sender: FDA-Public Use
  Company Number: None

PATIENT
  Age: 51 Year
  Sex: Male
  Weight: 100 kg

DRUGS (10)
  1. PROPOFOL [Suspect]
     Active Substance: PROPOFOL
     Indication: Induction of anaesthesia
     Dosage: DOSE DESCRIPTION : DRUG_INTERVAL_DOSAGE_UNIT_NUMBER : 1 DRUG_INTERVAL_DOSAGE_DEFINITION : {TOTAL}
     Route: 042
  2. ACETAMINOPHEN [Suspect]
     Active Substance: ACETAMINOPHEN
     Indication: Peritonitis
     Dosage: DOSE DESCRIPTION : 2 TIMES 1G / 200 MG DRUG_INTERVAL_DOSAGE_UNIT_NUMBER : 1 DRUG_INTERVAL_DOSAGE_DEF
     Route: 042
  3. SUCCINYLCHOLINE CHLORIDE [Suspect]
     Active Substance: SUCCINYLCHOLINE CHLORIDE
     Indication: Endotracheal intubation
     Dosage: DOSE DESCRIPTION : DRUG_INTERVAL_DOSAGE_UNIT_NUMBER : 1 DRUG_INTERVAL_DOSAGE_DEFINITION : {TOTAL}
     Route: 042
  4. PHLOROGLUCINOL [Suspect]
     Active Substance: PHLOROGLUCINOL
     Indication: Peritonitis
     Dosage: DOSE DESCRIPTION : DRUG_INTERVAL_DOSAGE_UNIT_NUMBER : 1 DRUG_INTERVAL_DOSAGE_DEFINITION : {TOTAL}
     Route: 042
  5. TOZINAMERAN [Suspect]
     Active Substance: TOZINAMERAN
     Indication: COVID-19 immunisation
     Dosage: DOSE DESCRIPTION : D1 DRUG_INTERVAL_DOSAGE_UNIT_NUMBER : 1 DRUG_INTERVAL_DOSAGE_DEFINITION : {TOTAL}
     Route: 030
     Dates: start: 20210519
  6. ROCURONIUM BROMIDE [Suspect]
     Active Substance: ROCURONIUM BROMIDE
     Indication: Endotracheal intubation
     Dosage: DOSE DESCRIPTION : DRUG_INTERVAL_DOSAGE_UNIT_NUMBER : 1 DRUG_INTERVAL_DOSAGE_DEFINITION : {TOTAL}
     Route: 042
  7. AMOXICILLIN\CLAVULANIC ACID [Suspect]
     Active Substance: AMOXICILLIN\CLAVULANIC ACID
     Indication: Peritonitis
     Dosage: DOSE DESCRIPTION : 2 TIMES 1G / 200MG DRUG_INTERVAL_DOSAGE_UNIT_NUMBER : 1 DRUG_INTERVAL_DOSAGE_DEFI
     Route: 042
  8. SUFENTANIL [Suspect]
     Active Substance: SUFENTANIL
     Indication: Induction of anaesthesia
     Dosage: DOSE DESCRIPTION : DRUG_INTERVAL_DOSAGE_UNIT_NUMBER : 1 DRUG_INTERVAL_DOSAGE_DEFINITION : {TOTAL}
     Route: 042
  9. IOMEPROL [Suspect]
     Active Substance: IOMEPROL
     Indication: Peritonitis
     Dosage: DOSE DESCRIPTION : DRUG_INTERVAL_DOSAGE_UNIT_NUMBER : 1 DRUG_INTERVAL_DOSAGE_DEFINITION : {TOTAL}
     Route: 042
  10. KETAMINE HYDROCHLORIDE [Suspect]
     Active Substance: KETAMINE HYDROCHLORIDE
     Indication: Induction of anaesthesia
     Dosage: DOSE DESCRIPTION : 50 MG, TOTAL
     Route: 042

REACTIONS (1)
  - Cardiogenic shock [Fatal]

NARRATIVE: CASE EVENT DATE: 20210522
